FAERS Safety Report 23454680 (Version 1)
Quarter: 2024Q1

REPORT INFORMATION
  Report Type: Spontaneous
  Country: US (occurrence: US)
  Receive Date: 20240130
  Receipt Date: 20240130
  Transmission Date: 20240410
  Serious: No
  Sender: FDA-Public Use
  Company Number: US-ABBVIE-5603482

PATIENT

DRUGS (2)
  1. RINVOQ [Suspect]
     Active Substance: UPADACITINIB
     Indication: Dermatitis atopic
     Route: 048
  2. CIBINQO [Suspect]
     Active Substance: ABROCITINIB
     Indication: Dermatitis atopic
     Dosage: 100-MG TBALETS PO QD, 30-DAY SUPPLY CIBINQO (ABROCITINIB) 200-MG TBALETS PO QD, 30-DAY
     Route: 065

REACTIONS (2)
  - Dermatitis atopic [Unknown]
  - Therapeutic product effect incomplete [Unknown]
